FAERS Safety Report 4776857-1 (Version None)
Quarter: 2005Q3

REPORT INFORMATION
  Report Type: 
  Country: None (occurrence: None)
  Receive Date: 20050921
  Receipt Date: 20050913
  Transmission Date: 20060218
  Serious: Yes (Other)
  Sender: FDA-Public Use
  Company Number: 2005127353

PATIENT
  Age: 15 Year
  Sex: Female
  Weight: 151.0478 kg

DRUGS (2)
  1. DEPO-PROVERA [Suspect]
     Indication: CONTRACEPTION
     Dosage: (LAST INJECTION)
     Dates: start: 20041201, end: 20041201
  2. ADVAIR DISKUS 100/50 [Concomitant]

REACTIONS (8)
  - ALOPECIA [None]
  - DENTAL CARIES [None]
  - DEPRESSION [None]
  - HYPERTENSION [None]
  - MIGRAINE [None]
  - POLLAKIURIA [None]
  - SLEEP DISORDER [None]
  - WEIGHT INCREASED [None]
